FAERS Safety Report 6256752-1 (Version None)
Quarter: 2009Q3

REPORT INFORMATION
  Report Type: 
  Country: None (occurrence: None)
  Receive Date: 20090706
  Receipt Date: 20090630
  Transmission Date: 20100115
  Serious: Yes (Other)
  Sender: FDA-Public Use
  Company Number: US-BIOGENIDEC-2009BI012042

PATIENT
  Age: 53 Year
  Sex: Male
  Weight: 56 kg

DRUGS (3)
  1. AVONEX [Suspect]
     Indication: MULTIPLE SCLEROSIS
     Route: 030
     Dates: start: 20090418, end: 20090516
  2. METFORMIN HCL [Concomitant]
     Route: 048
  3. BUFFERIN [Concomitant]
     Indication: PROPHYLAXIS
     Route: 048

REACTIONS (16)
  - BLOOD GLUCOSE INCREASED [None]
  - CATARACT OPERATION [None]
  - CONTUSION [None]
  - DYSARTHRIA [None]
  - FALL [None]
  - HEART VALVE INCOMPETENCE [None]
  - HEMIPARESIS [None]
  - INJECTION SITE ERYTHEMA [None]
  - LACUNAR INFARCTION [None]
  - MITRAL VALVE DISEASE [None]
  - PALPITATIONS [None]
  - PARAPARESIS [None]
  - PROCEDURAL COMPLICATION [None]
  - SCRATCH [None]
  - TRANSIENT ISCHAEMIC ATTACK [None]
  - WEIGHT DECREASED [None]
